FAERS Safety Report 14720047 (Version 3)
Quarter: 2018Q2

REPORT INFORMATION
  Report Type: Spontaneous
  Country: US (occurrence: US)
  Receive Date: 20180405
  Receipt Date: 20180611
  Transmission Date: 20180711
  Serious: Yes (Other)
  Sender: FDA-Public Use
  Company Number: US-BAYER-2018-061938

PATIENT
  Age: 39 Year
  Sex: Female
  Weight: 68 kg

DRUGS (2)
  1. BAYER LOW DOSE [Suspect]
     Active Substance: ASPIRIN
     Indication: ANTICOAGULANT THERAPY
     Dosage: 1 DF, QD
     Route: 048
     Dates: end: 201805
  2. BAYER LOW DOSE [Suspect]
     Active Substance: ASPIRIN
     Indication: ANTICOAGULANT THERAPY
     Dosage: 1 DF, QD
     Route: 048
     Dates: start: 2017

REACTIONS (6)
  - Cerebral thrombosis [Not Recovered/Not Resolved]
  - Underdose [None]
  - Headache [Unknown]
  - Head discomfort [Not Recovered/Not Resolved]
  - Drug ineffective [Unknown]
  - Drug effect variable [Unknown]

NARRATIVE: CASE EVENT DATE: 20180328
